FAERS Safety Report 15788474 (Version 7)
Quarter: 2019Q2

REPORT INFORMATION
  Report Type: Spontaneous
  Country: JP (occurrence: JP)
  Receive Date: 20190104
  Receipt Date: 20190604
  Transmission Date: 20190711
  Serious: Yes (Hospitalization, Other)
  Sender: FDA-Public Use
  Company Number: JP-ASTRAZENECA-2018SF71607

PATIENT
  Age: 24645 Day
  Sex: Female
  Weight: 42 kg

DRUGS (2)
  1. LYNPARZA [Suspect]
     Active Substance: OLAPARIB
     Indication: OVARIAN CANCER
     Route: 048
     Dates: start: 20181030, end: 20181127
  2. LYNPARZA [Suspect]
     Active Substance: OLAPARIB
     Indication: OVARIAN CANCER
     Route: 048
     Dates: start: 20190125

REACTIONS (9)
  - Pneumonia [Recovered/Resolved]
  - Hypophagia [Unknown]
  - Erythema [Recovering/Resolving]
  - Bone marrow failure [Unknown]
  - Fatigue [Unknown]
  - Vomiting [Recovered/Resolved]
  - Peripheral swelling [Recovering/Resolving]
  - Taste disorder [Recovered/Resolved]
  - Nausea [Recovering/Resolving]

NARRATIVE: CASE EVENT DATE: 20181031
